FAERS Safety Report 8800930 (Version 2)
Quarter: 2018Q4

REPORT INFORMATION
  Report Type: Spontaneous
  Country: DE (occurrence: DE)
  Receive Date: 20120920
  Receipt Date: 20181026
  Transmission Date: 20190205
  Serious: Yes (Congenital Anomaly)
  Sender: FDA-Public Use
  Company Number: DE-ROCHE-1133534

PATIENT

DRUGS (18)
  1. DELIX (RAMIPRIL) [Suspect]
     Active Substance: RAMIPRIL
     Indication: PRODUCT USED FOR UNKNOWN INDICATION
     Route: 064
  2. ASPIRIN. [Concomitant]
     Active Substance: ASPIRIN
     Route: 064
  3. PANTOZOL [Concomitant]
     Active Substance: PANTOPRAZOLE SODIUM
     Route: 064
  4. NOVAMINSULFON [Concomitant]
     Active Substance: METAMIZOLE
     Route: 064
  5. TOREM [Suspect]
     Active Substance: TORSEMIDE
     Indication: PRODUCT USED FOR UNKNOWN INDICATION
     Route: 064
  6. CYCLOPHOSPHAMIDE. [Concomitant]
     Active Substance: CYCLOPHOSPHAMIDE
     Route: 064
  7. NOVAMINSULFON [Concomitant]
     Active Substance: METAMIZOLE
     Route: 064
  8. MIFEGYNE [Concomitant]
     Active Substance: MIFEPRISTONE
     Route: 064
  9. CLEXANE [Concomitant]
     Active Substance: ENOXAPARIN SODIUM
     Route: 064
  10. XARELTO [Concomitant]
     Active Substance: RIVAROXABAN
     Route: 064
  11. ADVAGRAF [Suspect]
     Active Substance: TACROLIMUS
     Indication: PRODUCT USED FOR UNKNOWN INDICATION
     Route: 064
  12. INEGY [Suspect]
     Active Substance: EZETIMIBE\SIMVASTATIN
     Indication: PRODUCT USED FOR UNKNOWN INDICATION
     Route: 064
  13. CYTOTEC [Concomitant]
     Active Substance: MISOPROSTOL
     Route: 064
  14. RITUXIMAB. [Suspect]
     Active Substance: RITUXIMAB
     Indication: PRODUCT USED FOR UNKNOWN INDICATION
     Route: 064
  15. RASILEZ [Concomitant]
     Active Substance: ALISKIREN
     Route: 064
  16. PREDNISOLON [Concomitant]
     Active Substance: PREDNISOLONE
     Route: 064
  17. ALBUTEROL. [Concomitant]
     Active Substance: ALBUTEROL
     Route: 064
  18. QUENSYL [Suspect]
     Active Substance: HYDROXYCHLOROQUINE
     Indication: PRODUCT USED FOR UNKNOWN INDICATION
     Route: 064

REACTIONS (5)
  - Ventricular septal defect [Not Recovered/Not Resolved]
  - Truncus arteriosus persistent [Not Recovered/Not Resolved]
  - Maternal drugs affecting foetus [None]
  - Foetal exposure during pregnancy [Unknown]
  - Abortion induced [None]
